FAERS Safety Report 4444192-7 (Version None)
Quarter: 2004Q3

REPORT INFORMATION
  Report Type: 
  Country: None (occurrence: None)
  Receive Date: 20040902
  Receipt Date: 20040816
  Transmission Date: 20050211
  Serious: Yes (Other)
  Sender: FDA-Public Use
  Company Number: USA040875609

PATIENT
  Age: 67 Year
  Sex: Female
  Weight: 97 kg

DRUGS (2)
  1. HUMULIN R [Suspect]
  2. HUMULIN N [Suspect]

REACTIONS (11)
  - ARTHRITIS [None]
  - BALANCE DISORDER [None]
  - BLOOD GLUCOSE INCREASED [None]
  - CARDIAC DISORDER [None]
  - CHOLECYSTECTOMY [None]
  - FIBROMYALGIA [None]
  - HIP FRACTURE [None]
  - HYPERTENSION [None]
  - NEUROPATHY [None]
  - PHARMACEUTICAL PRODUCT COMPLAINT [None]
  - TREATMENT NONCOMPLIANCE [None]
